FAERS Safety Report 4917208-9 (Version None)
Quarter: 2006Q1

REPORT INFORMATION
  Report Type: 
  Country: None (occurrence: None)
  Receive Date: 20060221
  Receipt Date: 20060220
  Transmission Date: 20060701
  Serious: Yes (Hospitalization)
  Sender: FDA-Public Use
  Company Number: US-GLAXOSMITHKLINE-A0594334A

PATIENT
  Age: 65 Year
  Sex: Female

DRUGS (7)
  1. NICODERM CQ [Suspect]
     Indication: SMOKING CESSATION THERAPY
     Route: 062
     Dates: start: 20001201, end: 20011201
  2. NICORETTE FRESHMINT [Suspect]
     Indication: SMOKING CESSATION THERAPY
     Route: 002
  3. NICORETTE OTC GUM, ORANGE [Suspect]
     Indication: SMOKING CESSATION THERAPY
     Route: 002
     Dates: start: 20040101
  4. WELLBUTRIN [Concomitant]
     Dates: start: 20001201, end: 20010101
  5. PREMARIN [Concomitant]
  6. PROTONIX [Concomitant]
  7. ONE-A-DAY WITH IRON [Concomitant]

REACTIONS (14)
  - ATRIAL FIBRILLATION [None]
  - BLOOD CHOLESTEROL INCREASED [None]
  - BREAST CANCER [None]
  - COLON CANCER [None]
  - DRUG ABUSER [None]
  - DRUG INEFFECTIVE [None]
  - HYPERTENSION [None]
  - INTENTIONAL DRUG MISUSE [None]
  - LUNG NEOPLASM MALIGNANT [None]
  - MOUTH ULCERATION [None]
  - MUSCLE SPASMS [None]
  - STOMATITIS [None]
  - TONGUE ULCERATION [None]
  - WRONG TECHNIQUE IN DRUG USAGE PROCESS [None]
